FAERS Safety Report 18842112 (Version 1)
Quarter: 2021Q1

REPORT INFORMATION
  Report Type: Report from Study
  Country: RU (occurrence: RU)
  Receive Date: 20210203
  Receipt Date: 20210203
  Transmission Date: 20210419
  Serious: Yes (Hospitalization)
  Sender: FDA-Public Use
  Company Number: RU-CELGENEUS-RUS-20201205133

PATIENT
  Sex: Male
  Weight: 75.1 kg

DRUGS (3)
  1. OZANIMOD. [Suspect]
     Active Substance: OZANIMOD
     Indication: COLITIS ULCERATIVE
     Dosage: 1 MILLIGRAM
     Route: 048
     Dates: start: 20191105
  2. SALOFALK [Concomitant]
     Indication: COLITIS ULCERATIVE
     Dosage: 4 GRAM
     Route: 048
     Dates: start: 20180807
  3. BIFIFORM [Concomitant]
     Active Substance: BIFIDOBACTERIUM LONGUM
     Indication: COLITIS ULCERATIVE
     Dosage: 2 CAPSULE
     Route: 048
     Dates: start: 201708

REACTIONS (2)
  - COVID-19 [Recovered/Resolved]
  - Pulmonary embolism [Recovered/Resolved]

NARRATIVE: CASE EVENT DATE: 20201031
